FAERS Safety Report 9181919 (Version 2)
Quarter: 2013Q2

REPORT INFORMATION
  Report Type: Spontaneous
  Country: TR (occurrence: TR)
  Receive Date: 20130322
  Receipt Date: 20130506
  Transmission Date: 20140414
  Serious: Yes (Hospitalization)
  Sender: FDA-Public Use
  Company Number: TR-ELI_LILLY_AND_COMPANY-TR201303006746

PATIENT
  Age: 18 Year
  Sex: Male

DRUGS (6)
  1. ZYPREXA [Suspect]
     Indication: MAJOR DEPRESSION
     Dosage: 2.5 MG, QD
  2. ZYPREXA [Suspect]
     Dosage: 10 MG, QD
  3. VENLAFAXINE [Concomitant]
     Indication: MAJOR DEPRESSION
     Dosage: 75 MG, QD
  4. ARIPIPRAZOLE [Concomitant]
     Indication: MAJOR DEPRESSION
     Dosage: 15 MG, QD
  5. FLUOXETINE [Concomitant]
     Indication: DEPRESSION
     Dosage: 20 MG, UNK
  6. FLUOXETINE [Concomitant]
     Dosage: 40 MG, UNK

REACTIONS (2)
  - Neurodegenerative disorder [Recovering/Resolving]
  - Weight increased [Unknown]
